FAERS Safety Report 18557101 (Version 1)
Quarter: 2020Q4

REPORT INFORMATION
  Report Type: Spontaneous
  Country: RU (occurrence: RU)
  Receive Date: 20201129
  Receipt Date: 20201129
  Transmission Date: 20210114
  Serious: Yes (Death, Hospitalization, Other)
  Sender: FDA-Public Use
  Company Number: RU-NOVOPROD-769066

PATIENT
  Age: 81 Year
  Sex: Female
  Weight: 81 kg

DRUGS (3)
  1. LEVEMIR [Suspect]
     Active Substance: INSULIN DETEMIR
     Indication: TYPE 2 DIABETES MELLITUS
     Dosage: 20 IU: 10 UNITS 2 TIMES PER DAY
     Route: 058
     Dates: end: 20200626
  2. APIDRA [Concomitant]
     Active Substance: INSULIN GLULISINE
     Indication: TYPE 2 DIABETES MELLITUS
     Dosage: 16 IU: 6 - 6 - 6
  3. LEVEMIR [Suspect]
     Active Substance: INSULIN DETEMIR
     Dosage: 10 IU, QD
     Route: 058
     Dates: start: 20200627

REACTIONS (11)
  - Sepsis [Unknown]
  - Aspiration [Unknown]
  - Encephalopathy [Unknown]
  - Multiple organ dysfunction syndrome [Unknown]
  - Hypoglycaemic coma [Fatal]
  - Diabetes mellitus inadequate control [Unknown]
  - Ischaemic cardiomyopathy [Fatal]
  - Acute respiratory failure [Unknown]
  - Acute kidney injury [Unknown]
  - Malnutrition [Unknown]
  - Disseminated intravascular coagulation [Unknown]

NARRATIVE: CASE EVENT DATE: 20200627
